FAERS Safety Report 4480590-3 (Version None)
Quarter: 2004Q4

REPORT INFORMATION
  Report Type: 
  Country: None (occurrence: None)
  Receive Date: 20041019
  Receipt Date: 20041006
  Transmission Date: 20050328
  Serious: No
  Sender: FDA-Public Use
  Company Number: 2004235403JP

PATIENT
  Age: 68 Year
  Sex: Female

DRUGS (1)
  1. MEDROL [Suspect]
     Indication: PERICARDITIS
     Dosage: 40 MG , QD
     Dates: start: 20031001

REACTIONS (7)
  - ANURIA [None]
  - DIALYSIS [None]
  - MICROANGIOPATHIC HAEMOLYTIC ANAEMIA [None]
  - PULMONARY HAEMORRHAGE [None]
  - PULMONARY OEDEMA [None]
  - RENAL IMPAIRMENT [None]
  - SCLERODERMA RENAL CRISIS [None]
